FAERS Safety Report 8670358 (Version 2)
Quarter: 2015Q3

REPORT INFORMATION
  Report Type: Report from Study
  Country: US (occurrence: US)
  Receive Date: 20120718
  Receipt Date: 20150804
  Transmission Date: 20151125
  Serious: Yes (Death)
  Sender: FDA-Public Use
  Company Number: US-ROCHE-1087370

PATIENT
  Sex: Female

DRUGS (2)
  1. LUCENTIS [Suspect]
     Active Substance: RANIBIZUMAB
     Indication: NEOVASCULAR AGE-RELATED MACULAR DEGENERATION
     Dosage: 10MG/ML
     Route: 065
  2. ZYMAR [Concomitant]
     Active Substance: GATIFLOXACIN
     Dosage: 3 DROPS 2 DAYS BEFORE INJ AND 5 DAYS AFTER INJ
     Route: 065

REACTIONS (1)
  - Death [Fatal]
